FAERS Safety Report 23363569 (Version 1)
Quarter: 2024Q1

REPORT INFORMATION
  Report Type: Report from Study
  Country: DE (occurrence: DE)
  Receive Date: 20240103
  Receipt Date: 20240103
  Transmission Date: 20240410
  Serious: Yes (Other)
  Sender: FDA-Public Use
  Company Number: DE-VER-202300011

PATIENT
  Age: 57 Year
  Sex: Male

DRUGS (6)
  1. TRIPTORELIN PAMOATE [Suspect]
     Active Substance: TRIPTORELIN PAMOATE
     Indication: Prostate cancer
     Dosage: (22.5 MG,24 WK)
     Route: 058
     Dates: start: 20230502
  2. SELENIUM [Concomitant]
     Active Substance: SELENIUM
     Indication: Prophylaxis
     Dosage: (1 OTHER,1 M)
     Route: 042
     Dates: start: 2023
  3. VITAMIN D [Concomitant]
     Active Substance: VITAMIN D NOS
     Indication: Prophylaxis
     Dosage: (20000 IU,1 D)
     Route: 048
     Dates: start: 2023
  4. LUTANOPROST [Concomitant]
     Indication: Glaucoma
     Dosage: (1 OTHER,1 D)
     Route: 057
     Dates: start: 2018
  5. VITAMIN B COMPLEX NOS [Concomitant]
     Active Substance: CYANOCOBALAMIN\PYRIDOXINE HYDROCHLORIDE\RIBOFLAVIN\SODIUM PANTOTHENATE\THIAMINE HYDROCHLORIDE\VITAMI
     Indication: Prophylaxis
     Dosage: (1 OTHER,1 D)
     Route: 048
     Dates: start: 20211222
  6. EDOXABAN TOSYLATE [Concomitant]
     Active Substance: EDOXABAN TOSYLATE
     Indication: Thrombosis
     Dosage: (60 MG,1 D)
     Route: 048
     Dates: start: 20211222

REACTIONS (1)
  - COVID-19 [Recovered/Resolved]

NARRATIVE: CASE EVENT DATE: 20231103
